FAERS Safety Report 14758911 (Version 1)
Quarter: 2018Q2

REPORT INFORMATION
  Report Type: Spontaneous
  Country: FR (occurrence: FR)
  Receive Date: 20180413
  Receipt Date: 20180413
  Transmission Date: 20180711
  Serious: Yes (Life-Threatening, Hospitalization, Congenital Anomaly, Other)
  Sender: FDA-Public Use
  Company Number: FR-LUNDBECK-DKLU2047096

PATIENT
  Age: 22 Year
  Sex: Male

DRUGS (9)
  1. IMETH [Concomitant]
     Active Substance: METHOTREXATE SODIUM
     Indication: PRODUCT USED FOR UNKNOWN INDICATION
     Route: 065
     Dates: start: 20160201
  2. LEPTICUR [Concomitant]
     Active Substance: TROPATEPINE HYDROCHLORIDE
     Indication: PRODUCT USED FOR UNKNOWN INDICATION
     Route: 065
     Dates: start: 20180313
  3. SPECIAFOLDINE [Concomitant]
     Active Substance: FOLIC ACID
     Indication: PRODUCT USED FOR UNKNOWN INDICATION
     Route: 065
  4. LOXAPAC [Suspect]
     Active Substance: LOXAPINE
     Indication: PRODUCT USED FOR UNKNOWN INDICATION
     Route: 065
     Dates: start: 20180308, end: 20180311
  5. VALIUM [Suspect]
     Active Substance: DIAZEPAM
     Indication: PRODUCT USED FOR UNKNOWN INDICATION
     Route: 065
     Dates: start: 20180308, end: 20180311
  6. INNOVAIR [Concomitant]
     Active Substance: BECLOMETHASONE DIPROPIONATE\FORMOTEROL
     Indication: PRODUCT USED FOR UNKNOWN INDICATION
     Route: 065
     Dates: start: 201605
  7. URBANYL [Suspect]
     Active Substance: CLOBAZAM
     Indication: PRODUCT USED FOR UNKNOWN INDICATION
     Route: 048
     Dates: start: 20180305
  8. PENICILLIN [Concomitant]
     Active Substance: PENICILLIN
     Indication: PRODUCT USED FOR UNKNOWN INDICATION
     Route: 065
  9. HUMIRA [Suspect]
     Active Substance: ADALIMUMAB
     Indication: PRODUCT USED FOR UNKNOWN INDICATION
     Route: 058
     Dates: start: 20160201

REACTIONS (46)
  - Meningitis aseptic [Unknown]
  - Oxygen saturation decreased [Unknown]
  - Platelet count increased [Unknown]
  - Dehydration [Unknown]
  - Blood bicarbonate decreased [Unknown]
  - Hyperleukocytosis [Unknown]
  - Aspartate aminotransferase increased [Unknown]
  - Vomiting [Recovered/Resolved]
  - Epilepsy [Recovered/Resolved]
  - Agitation [Unknown]
  - Hypernatraemia [Unknown]
  - Activated partial thromboplastin time shortened [Unknown]
  - White blood cell count increased [Unknown]
  - Mental disorder [Unknown]
  - Extrapyramidal disorder [Unknown]
  - Consciousness fluctuating [Not Recovered/Not Resolved]
  - Tachycardia [Recovered/Resolved]
  - Neutrophil count increased [Unknown]
  - Blood fibrinogen increased [Unknown]
  - Road traffic accident [Unknown]
  - Tachypnoea [Unknown]
  - Gastric disorder [Unknown]
  - Hypertonia [Unknown]
  - Delirium [Unknown]
  - Muscle spasms [Recovering/Resolving]
  - Blood urea increased [Unknown]
  - Blood creatinine increased [Unknown]
  - Sinus tachycardia [Unknown]
  - Generalised tonic-clonic seizure [Recovered/Resolved]
  - Encephalitis [Not Recovered/Not Resolved]
  - Skin papilloma [Unknown]
  - C-reactive protein increased [Unknown]
  - Hypertension [Unknown]
  - Blood potassium increased [Unknown]
  - Catatonia [Unknown]
  - Use of accessory respiratory muscles [Unknown]
  - Haemoglobin increased [Unknown]
  - Mean cell haemoglobin increased [Unknown]
  - Monocyte count increased [Unknown]
  - Dysphemia [Unknown]
  - Aggression [Unknown]
  - Hypothermia [Recovered/Resolved]
  - Immunosuppression [Unknown]
  - Glomerular filtration rate decreased [Unknown]
  - Eosinophil count decreased [Unknown]
  - Upper respiratory tract congestion [Unknown]

NARRATIVE: CASE EVENT DATE: 2018
